FAERS Safety Report 6423961-8 (Version None)
Quarter: 2009Q4

REPORT INFORMATION
  Report Type: 
  Country: None (occurrence: None)
  Receive Date: 20091102
  Receipt Date: 20091028
  Transmission Date: 20100525
  Serious: Yes (Death, Other)
  Sender: FDA-Public Use
  Company Number: PHHY2009HK46883

PATIENT
  Age: 6 Year
  Sex: Female

DRUGS (5)
  1. CYCLOSPORINE [Suspect]
     Indication: CORD BLOOD TRANSPLANT THERAPY
  2. METHYLPREDNISOLONE 4MG TAB [Suspect]
  3. BUSULPHAN [Concomitant]
     Dosage: 16 MG/KG FOR 4 DAYS
  4. CYCLOPHOSPHAMIDE [Concomitant]
     Dosage: 60 MG/KG FOR 2 DAYS
  5. MELPHALAN [Concomitant]
     Dosage: 140 MG/M2, UNK

REACTIONS (11)
  - BONE MARROW FAILURE [None]
  - CONVULSION [None]
  - DEPRESSED LEVEL OF CONSCIOUSNESS [None]
  - ENCEPHALITIS HERPES [None]
  - EUPHORIC MOOD [None]
  - GASTROINTESTINAL HAEMORRHAGE [None]
  - HUMAN HERPESVIRUS 6 INFECTION [None]
  - LYMPHOPENIA [None]
  - PNEUMONIA [None]
  - RENAL IMPAIRMENT [None]
  - SLEEP DISORDER [None]
